FAERS Safety Report 24354820 (Version 7)
Quarter: 2025Q2

REPORT INFORMATION
  Report Type: Spontaneous
  Country: US (occurrence: US)
  Receive Date: 20240923
  Receipt Date: 20250419
  Transmission Date: 20250716
  Serious: No
  Sender: SANOFI AVENTIS
  Company Number: US-SA-2024SA271750

PATIENT
  Age: 16 Year
  Sex: Male

DRUGS (5)
  1. ALTUVIIIO [Suspect]
     Active Substance: EFANESOCTOCOG ALFA
     Route: 042
     Dates: start: 202405
  2. ALTUVIIIO [Suspect]
     Active Substance: EFANESOCTOCOG ALFA
     Route: 042
  3. ALTUVIIIO [Suspect]
     Active Substance: EFANESOCTOCOG ALFA
     Dosage: 1825/3650 U, QW
     Route: 042
  4. ALTUVIIIO [Suspect]
     Active Substance: EFANESOCTOCOG ALFA
     Route: 042
  5. ALTUVIIIO [Suspect]
     Active Substance: EFANESOCTOCOG ALFA
     Dosage: 3000 U, QW
     Route: 042

REACTIONS (6)
  - Haemorrhage [Recovered/Resolved]
  - Ligament sprain [Unknown]
  - Traumatic haemorrhage [Not Recovered/Not Resolved]
  - Limb injury [Unknown]
  - Joint swelling [Unknown]
  - Traumatic haemorrhage [Not Recovered/Not Resolved]

NARRATIVE: CASE EVENT DATE: 20240904
